FAERS Safety Report 8952308 (Version 1)
Quarter: 2012Q4

REPORT INFORMATION
  Report Type: 
  Country: US (occurrence: US)
  Receive Date: 20121205
  Receipt Date: 20121205
  Transmission Date: 20130627
  Serious: No
  Sender: FDA-Public Use
  Company Number: US-009507513-1211USA011740

PATIENT
  Age: 24 Year
  Sex: Female
  Weight: 49.43 kg

DRUGS (2)
  1. NUVARING [Suspect]
     Indication: CONTRACEPTION
     Dosage: UNK
     Route: 067
     Dates: start: 201207
  2. VITAMINS (UNSPECIFIED) [Concomitant]

REACTIONS (9)
  - Mobility decreased [Unknown]
  - Fall [Unknown]
  - Crying [Unknown]
  - Dyspareunia [Unknown]
  - Medical device discomfort [Unknown]
  - Pain [Unknown]
  - Vaginal discharge [Unknown]
  - Vulval disorder [Unknown]
  - Vulvovaginal discomfort [Unknown]
